FAERS Safety Report 9685175 (Version 2)
Quarter: 2014Q2

REPORT INFORMATION
  Report Type: Report from Study
  Country: DE (occurrence: DE)
  Receive Date: 20131113
  Receipt Date: 20140429
  Transmission Date: 20141212
  Serious: Yes (Other)
  Sender: FDA-Public Use
  Company Number: DE-BAYER-2013-137281

PATIENT
  Age: 31 Year
  Sex: Female

DRUGS (1)
  1. BETAFERON [Suspect]
     Indication: MULTIPLE SCLEROSIS
     Dosage: 250 ?G, QOD
     Route: 058
     Dates: start: 20130508, end: 20140414

REACTIONS (4)
  - Multiple sclerosis relapse [None]
  - Hypoaesthesia [None]
  - Paraesthesia [None]
  - Multiple sclerosis relapse [None]
